FAERS Safety Report 8363577-X (Version None)
Quarter: 2012Q2

REPORT INFORMATION
  Report Type: 
  Country: None (occurrence: None)
  Receive Date: 20120516
  Receipt Date: 20120508
  Transmission Date: 20120825
  Serious: Yes (Other)
  Sender: FDA-Public Use
  Company Number: PHHY2012CH040926

PATIENT
  Age: 37 Year
  Sex: Female

DRUGS (8)
  1. SOLMUCOL [Suspect]
     Indication: BRONCHITIS
     Dosage: 2 DF, PER DAY
     Dates: start: 20111217, end: 20111219
  2. IBUPROFEN TABLETS [Suspect]
     Indication: BRONCHITIS
     Dosage: UNK
     Dates: start: 20111217
  3. RESYL PLUS [Suspect]
     Indication: BRONCHITIS
     Dosage: THRICE PER DAY
     Dates: start: 20111217, end: 20111219
  4. MYDOCALM [Suspect]
     Indication: BRONCHITIS
     Dosage: 5 PER DAY
     Dates: start: 20111217, end: 20111221
  5. DIPYRONE TAB [Suspect]
     Indication: BRONCHITIS
     Dosage: 2 DF, PER DAY
     Dates: start: 20111217, end: 20111220
  6. SYMBICORT [Suspect]
     Indication: BRONCHITIS
     Dosage: UNK
     Dates: start: 20111217, end: 20111218
  7. VOLTAREN [Suspect]
     Indication: BRONCHITIS
     Dosage: UNK
     Dates: start: 20111217, end: 20111201
  8. ACETAMINOPHEN [Suspect]
     Dosage: 04 PER DAY
     Dates: start: 20111217

REACTIONS (2)
  - MATERNAL EXPOSURE DURING PREGNANCY [None]
  - ABORTION SPONTANEOUS [None]
